FAERS Safety Report 5631875-6 (Version None)
Quarter: 2008Q1

REPORT INFORMATION
  Report Type: 
  Country: None (occurrence: None)
  Receive Date: 20080220
  Receipt Date: 20080213
  Transmission Date: 20080703
  Serious: Yes (Other)
  Sender: FDA-Public Use
  Company Number: US-PURDUE-USA_2008_0031605

PATIENT
  Sex: Female

DRUGS (2)
  1. OXYCONTIN [Suspect]
     Indication: DRUG USE FOR UNKNOWN INDICATION
     Dosage: UNK UNK, UNK
     Dates: start: 20070101
  2. UNKNOWN [Suspect]

REACTIONS (2)
  - DEMENTIA [None]
  - HALLUCINATION [None]
